FAERS Safety Report 8420150-2 (Version None)
Quarter: 2012Q2

REPORT INFORMATION
  Report Type: 
  Country: None (occurrence: None)
  Receive Date: 20120607
  Receipt Date: 20120525
  Transmission Date: 20120825
  Serious: Yes (Disabling)
  Sender: FDA-Public Use
  Company Number: IN-MYLANLABS-2012S1011081

PATIENT
  Age: 49 Year
  Sex: Male

DRUGS (1)
  1. LEVOFLOXACIN [Suspect]
     Indication: SINUSITIS
     Dosage: 500MG TABLETS ONCE DAILY FOR 5 DAYS
     Route: 048

REACTIONS (7)
  - DIZZINESS [None]
  - BLINDNESS [None]
  - EYE PAIN [None]
  - CONFUSIONAL STATE [None]
  - COLOUR BLINDNESS ACQUIRED [None]
  - OPTIC NEURITIS [None]
  - RESPIRATORY DISTRESS [None]
